FAERS Safety Report 4381443-1 (Version None)
Quarter: 2004Q2

REPORT INFORMATION
  Report Type: 
  Country: None (occurrence: None)
  Receive Date: 20040617
  Receipt Date: 20040617
  Transmission Date: 20050107
  Serious: Yes (Hospitalization)
  Sender: FDA-Public Use
  Company Number: None

PATIENT
  Age: 61 Year
  Sex: Male
  Weight: 89.8122 kg

DRUGS (9)
  1. CAPECITABINE 150 MG ROCHE [Suspect]
     Indication: RECTAL CANCER
     Dosage: 300 MG BID ORAL
     Route: 048
     Dates: start: 20040127, end: 20040305
  2. CAPECITABINE 500 MG ROCHE [Suspect]
     Indication: RECTAL CANCER
     Dosage: 1500 MG BID ORAL
     Route: 048
     Dates: start: 20040127, end: 20040305
  3. AMITRIPTYLINE HCL [Concomitant]
  4. LISINOPRIL [Concomitant]
  5. DIBUCAINE [Concomitant]
  6. RANITIDINE HCL [Concomitant]
  7. DIPHENOXYLATE HCL + ATROPINE SULFATE [Concomitant]
  8. GLYBURIDE [Concomitant]
  9. METFORMIN HCL [Concomitant]

REACTIONS (9)
  - ACUTE PRERENAL FAILURE [None]
  - ASTHENIA [None]
  - DEHYDRATION [None]
  - DIARRHOEA [None]
  - DIZZINESS POSTURAL [None]
  - HYPOVOLAEMIA [None]
  - MARKEDLY REDUCED DIETARY INTAKE [None]
  - ORTHOSTATIC HYPOTENSION [None]
  - STOOLS WATERY [None]
